FAERS Safety Report 10913006 (Version 5)
Quarter: 2015Q3

REPORT INFORMATION
  Report Type: Report from Study
  Country: GB (occurrence: GB)
  Receive Date: 20150313
  Receipt Date: 20150806
  Transmission Date: 20151125
  Serious: Yes (Death, Hospitalization)
  Sender: FDA-Public Use
  Company Number: GB-EISAI MEDICAL RESEARCH-EC-2015-003531

PATIENT
  Age: 67 Year
  Sex: Female
  Weight: 70.4 kg

DRUGS (3)
  1. ERIBULIN [Suspect]
     Active Substance: ERIBULIN
     Dosage: UNKNOWN
     Route: 041
     Dates: start: 20150106, end: 20150106
  2. ERIBULIN [Suspect]
     Active Substance: ERIBULIN
     Route: 041
     Dates: start: 20141224, end: 20141224
  3. ERIBULIN [Suspect]
     Active Substance: ERIBULIN
     Indication: NEOPLASM
     Route: 041
     Dates: start: 20141125, end: 20141125

REACTIONS (7)
  - Malignant neoplasm progression [Fatal]
  - Hypophosphataemia [Recovered/Resolved]
  - Hypokalaemia [Recovered/Resolved]
  - Sepsis [Recovered/Resolved]
  - Febrile neutropenia [Recovered/Resolved]
  - Hypotension [Recovered/Resolved]
  - Neutropenia [Recovered/Resolved]

NARRATIVE: CASE EVENT DATE: 20141203
